FAERS Safety Report 21720720 (Version 1)
Quarter: 2022Q4

REPORT INFORMATION
  Report Type: Spontaneous
  Country: US (occurrence: None)
  Receive Date: 20221212
  Receipt Date: 20221212
  Transmission Date: 20230112
  Serious: Yes (Life-Threatening, Hospitalization)
  Sender: FDA-Public Use
  Company Number: None

PATIENT
  Age: 66 Year
  Sex: Male

DRUGS (1)
  1. VICTOZA [Suspect]
     Active Substance: LIRAGLUTIDE
     Indication: Diabetes mellitus
     Dosage: 1.8 MG EVERY DAY SQ?
     Route: 058
     Dates: start: 20181205, end: 20181225

REACTIONS (12)
  - Faeces discoloured [None]
  - Diarrhoea [None]
  - Vomiting [None]
  - Pyrexia [None]
  - Rash [None]
  - Angioedema [None]
  - Dyspnoea [None]
  - Hypotension [None]
  - Pruritus [None]
  - Hyperglycaemia [None]
  - Leukaemoid reaction [None]
  - Leukopenia [None]

NARRATIVE: CASE EVENT DATE: 20181225
